FAERS Safety Report 25967914 (Version 1)
Quarter: 2025Q4

REPORT INFORMATION
  Report Type: Spontaneous
  Country: US (occurrence: US)
  Receive Date: 20251028
  Receipt Date: 20251028
  Transmission Date: 20260118
  Serious: Yes (Hospitalization, Other)
  Sender: Medicap Laboratories
  Company Number: US-Medicap-000095

PATIENT
  Age: 71 Year
  Sex: Male

DRUGS (5)
  1. RIVASTIGMINE [Suspect]
     Active Substance: RIVASTIGMINE
     Indication: Dementia with Lewy bodies
     Route: 065
  2. PIMAVANSERIN [Suspect]
     Active Substance: PIMAVANSERIN
     Indication: Dementia with Lewy bodies
     Route: 065
  3. PRAZOSIN [Concomitant]
     Active Substance: PRAZOSIN
     Indication: Sleep terror
     Dosage: 1 MG PRAZOSIN AT BEDTIME
     Route: 065
  4. MELATONIN [Concomitant]
     Active Substance: MELATONIN
     Indication: Post-traumatic stress disorder
     Route: 065
  5. QUETIAPINE [Suspect]
     Active Substance: QUETIAPINE
     Indication: Dementia with Lewy bodies
     Route: 065

REACTIONS (3)
  - Psychotic disorder [Recovering/Resolving]
  - Condition aggravated [Recovering/Resolving]
  - Drug ineffective [Unknown]
